FAERS Safety Report 8857438 (Version 3)
Quarter: 2014Q2

REPORT INFORMATION
  Report Type: Spontaneous
  Country: US (occurrence: US)
  Receive Date: 20121024
  Receipt Date: 20140620
  Transmission Date: 20141212
  Serious: Yes (Disabling)
  Sender: FDA-Public Use
  Company Number: US-009507513-1210USA008910

PATIENT
  Sex: Male
  Weight: 91.61 kg

DRUGS (1)
  1. PROPECIA [Suspect]
     Indication: ANDROGENETIC ALOPECIA
     Dosage: 1 MG, UNK
     Route: 048
     Dates: start: 20040309, end: 20100609

REACTIONS (14)
  - Disability [Not Recovered/Not Resolved]
  - Cognitive disorder [Not Recovered/Not Resolved]
  - Anxiety [Unknown]
  - Emotional disorder [Unknown]
  - Disturbance in attention [Unknown]
  - Orgasm abnormal [Unknown]
  - Upper respiratory tract infection [Unknown]
  - Musculoskeletal discomfort [Unknown]
  - Gynaecomastia [Unknown]
  - Depression [Unknown]
  - Libido decreased [Unknown]
  - Disturbance in sexual arousal [Unknown]
  - Sexual dysfunction [Not Recovered/Not Resolved]
  - Erectile dysfunction [Unknown]
